FAERS Safety Report 6785092-7 (Version None)
Quarter: 2010Q2

REPORT INFORMATION
  Report Type: 
  Country: None (occurrence: None)
  Receive Date: 20100622
  Receipt Date: 20100614
  Transmission Date: 20101027
  Serious: Yes (Hospitalization, Other)
  Sender: FDA-Public Use
  Company Number: US-ABBOTT-09P-163-0571277-01

PATIENT
  Sex: Male
  Weight: 58.4 kg

DRUGS (9)
  1. HUMIRA [Suspect]
     Indication: CROHN'S DISEASE
     Route: 058
     Dates: start: 20080827, end: 20090415
  2. MUCINEX [Concomitant]
     Indication: HYPERSENSITIVITY
     Route: 048
     Dates: start: 20060101
  3. ADVIL LIQUI-GELS [Concomitant]
     Indication: ROTATOR CUFF SYNDROME
     Route: 048
     Dates: start: 20080401
  4. ADVIL LIQUI-GELS [Concomitant]
     Indication: HEADACHE
     Route: 048
     Dates: start: 20081213, end: 20081215
  5. ADVIL LIQUI-GELS [Concomitant]
     Indication: PYREXIA
  6. ADVIL LIQUI-GELS [Concomitant]
     Indication: ABDOMINAL PAIN
  7. FE SUPPLEMENT [Concomitant]
     Indication: ANAEMIA
     Route: 048
     Dates: start: 20080619, end: 20080623
  8. ASACOL [Concomitant]
     Indication: CROHN'S DISEASE
     Dates: start: 20090127, end: 20090204
  9. PREDNISONE [Concomitant]
     Indication: ABDOMINAL PAIN
     Route: 048
     Dates: start: 20090224

REACTIONS (1)
  - CROHN'S DISEASE [None]
